FAERS Safety Report 23475577 (Version 1)
Quarter: 2024Q1

REPORT INFORMATION
  Report Type: Report from Study
  Country: US (occurrence: US)
  Receive Date: 20240204
  Receipt Date: 20240204
  Transmission Date: 20240409
  Serious: No
  Sender: FDA-Public Use
  Company Number: US-EXELIXIS-CABO-23060226

PATIENT
  Age: 73 Year
  Sex: Male

DRUGS (11)
  1. CABOMETYX [Suspect]
     Active Substance: CABOZANTINIB S-MALATE
     Indication: Renal cell carcinoma
     Dosage: 40 MG, QD
     Dates: start: 20221231
  2. OPDIVO [Suspect]
     Active Substance: NIVOLUMAB
     Indication: Renal cell carcinoma
     Dosage: UNK, Q2WEEKS
     Dates: start: 20221231
  3. GLIPIZIDE [Concomitant]
     Active Substance: GLIPIZIDE
  4. ATORVASTATIN [Concomitant]
     Active Substance: ATORVASTATIN
  5. GABAPENTIN [Concomitant]
     Active Substance: GABAPENTIN
  6. VITAMINS [Concomitant]
     Active Substance: VITAMINS
  7. TYLENOL [Concomitant]
     Active Substance: ACETAMINOPHEN
  8. ONDANSETRON [Concomitant]
     Active Substance: ONDANSETRON
  9. COMPAZINE [Concomitant]
     Active Substance: PROCHLORPERAZINE MALEATE
  10. VITAMIN D3 [Concomitant]
     Active Substance: CHOLECALCIFEROL
  11. VITAMIN B-COMPLEX [Concomitant]
     Active Substance: DEXPANTHENOL\NIACINAMIDE\PYRIDOXINE HYDROCHLORIDE\RIBOFLAVIN 5^-PHOSPHATE SODIUM\THIAMINE HYDROCHLOR

REACTIONS (6)
  - Hepatic enzyme increased [Unknown]
  - Hypertension [Not Recovered/Not Resolved]
  - Constipation [Recovered/Resolved]
  - Haemoglobin decreased [Unknown]
  - Red blood cell count decreased [Unknown]
  - Pruritus [Recovering/Resolving]

NARRATIVE: CASE EVENT DATE: 20230126
